FAERS Safety Report 7471321-3 (Version None)
Quarter: 2011Q2

REPORT INFORMATION
  Report Type: 
  Country: None (occurrence: None)
  Receive Date: 20110510
  Receipt Date: 20110505
  Transmission Date: 20111010
  Serious: Yes (Hospitalization)
  Sender: FDA-Public Use
  Company Number: GB-AMGEN-GBRCT2011023490

PATIENT
  Age: 68 Year
  Sex: Male

DRUGS (4)
  1. VECTIBIX [Suspect]
     Indication: GASTROOESOPHAGEAL CANCER
     Dosage: UNK
     Dates: start: 20100805
  2. OXALIPLATIN [Concomitant]
     Dosage: UNK
     Dates: start: 20100805
  3. EPIRUBICIN [Concomitant]
     Dosage: UNK
     Dates: start: 20100805
  4. CAPECITABINE [Concomitant]
     Dosage: UNK
     Dates: start: 20100805

REACTIONS (1)
  - INFECTION [None]
